FAERS Safety Report 16998141 (Version 1)
Quarter: 2019Q4

REPORT INFORMATION
  Report Type: Spontaneous
  Country: CA (occurrence: CA)
  Receive Date: 20191106
  Receipt Date: 20191106
  Transmission Date: 20200122
  Serious: Yes (Hospitalization)
  Sender: FDA-Public Use
  Company Number: CA-SA-2019SA303089

PATIENT
  Age: 49 Year
  Sex: Female

DRUGS (3)
  1. IBUPROFEN. [Concomitant]
     Active Substance: IBUPROFEN
  2. TYLENOL [Concomitant]
     Active Substance: ACETAMINOPHEN
  3. RIFAMPICIN [Suspect]
     Active Substance: RIFAMPIN
     Indication: LATENT TUBERCULOSIS
     Dosage: 600 MG, QD
     Route: 048

REACTIONS (4)
  - Rash [Recovered/Resolved]
  - Petechiae [Recovered/Resolved]
  - Oral contusion [Recovered/Resolved]
  - Pyrexia [Recovered/Resolved]
